FAERS Safety Report 8829872 (Version 1)
Quarter: 2012Q4

REPORT INFORMATION
  Report Type: Report from Study
  Country: FR (occurrence: FR)
  Receive Date: 20121008
  Receipt Date: 20121008
  Transmission Date: 20130627
  Serious: Yes (Hospitalization)
  Sender: FDA-Public Use
  Company Number: FR-ROCHE-1140112

PATIENT
  Sex: Male
  Weight: 85 kg

DRUGS (2)
  1. CELLCEPT [Suspect]
     Indication: RENAL TRANSPLANT
     Route: 048
     Dates: start: 20110822
  2. CERTICAN [Suspect]
     Indication: RENAL TRANSPLANT
     Route: 048
     Dates: start: 20110827

REACTIONS (3)
  - Anaemia [Recovering/Resolving]
  - Fluid overload [Recovering/Resolving]
  - Blood sodium increased [Recovering/Resolving]
